FAERS Safety Report 6444295-1 (Version None)
Quarter: 2009Q4

REPORT INFORMATION
  Report Type: 
  Country: None (occurrence: None)
  Receive Date: 20091118
  Receipt Date: 20091104
  Transmission Date: 20100525
  Serious: Yes (Other)
  Sender: FDA-Public Use
  Company Number: PHHY2009GB45746

PATIENT
  Sex: Male

DRUGS (1)
  1. CLOZARIL [Suspect]
     Indication: SCHIZOPHRENIA
     Dosage: UNK
     Route: 048
     Dates: start: 20090925

REACTIONS (5)
  - AORTIC STENOSIS [None]
  - DIZZINESS [None]
  - FEELING ABNORMAL [None]
  - TACHYCARDIA [None]
  - URINARY TRACT INFECTION [None]
